FAERS Safety Report 6092079-9 (Version None)
Quarter: 2009Q1

REPORT INFORMATION
  Report Type: 
  Country: None (occurrence: None)
  Receive Date: 20090217
  Receipt Date: 20090131
  Transmission Date: 20090719
  Serious: Yes (Death)
  Sender: FDA-Public Use
  Company Number: THYM-1000874

PATIENT
  Age: 54 Year
  Sex: Male
  Weight: 60 kg

DRUGS (3)
  1. THYMOGLOBULIN [Suspect]
     Indication: PROPHYLAXIS AGAINST TRANSPLANT REJECTION
     Dosage: 2.5 MG/KG, QD, INTRAVENOUS
     Route: 042
     Dates: start: 20081210, end: 20081210
  2. FLUDARABINE PHOSPHATE [Concomitant]
  3. MELPHALAN (MELPHALAN) [Concomitant]

REACTIONS (10)
  - CARDIAC ARREST [None]
  - DEPRESSED LEVEL OF CONSCIOUSNESS [None]
  - DISEASE PROGRESSION [None]
  - INFECTION [None]
  - LYMPHOMA [None]
  - MULTI-ORGAN FAILURE [None]
  - PYREXIA [None]
  - RENAL FAILURE [None]
  - TRANSPLANT FAILURE [None]
  - WHITE BLOOD CELL COUNT DECREASED [None]
